FAERS Safety Report 18431267 (Version 1)
Quarter: 2020Q4

REPORT INFORMATION
  Report Type: Spontaneous
  Country: JP (occurrence: JP)
  Receive Date: 20201027
  Receipt Date: 20201027
  Transmission Date: 20210114
  Serious: No
  Sender: FDA-Public Use
  Company Number: JP-PFIZER INC-2020338482

PATIENT
  Age: 7 Year
  Sex: Female

DRUGS (1)
  1. GENOTROPIN [Suspect]
     Active Substance: SOMATROPIN
     Indication: GROWTH HORMONE DEFICIENCY
     Dosage: 0.45 MG, DAILY
     Route: 058
     Dates: start: 20181119

REACTIONS (2)
  - Poor quality device used [Unknown]
  - Device delivery system issue [Unknown]
